FAERS Safety Report 7442470-0 (Version None)
Quarter: 2011Q2

REPORT INFORMATION
  Report Type: 
  Country: None (occurrence: None)
  Receive Date: 20110428
  Receipt Date: 20110425
  Transmission Date: 20111010
  Serious: No
  Sender: FDA-Public Use
  Company Number: US-PFIZER INC-2011058333

PATIENT
  Sex: Female
  Weight: 61.8 kg

DRUGS (2)
  1. VICODIN [Suspect]
     Indication: MIGRAINE
     Dosage: 5/500, EVERY 6 HRS
     Route: 048
     Dates: start: 20110101, end: 20110312
  2. PREMARIN [Suspect]
     Indication: HORMONE REPLACEMENT THERAPY
     Dosage: 1.25 MG, 1X/DAY
     Route: 048
     Dates: start: 20110101, end: 20110313

REACTIONS (10)
  - IRRITABILITY [None]
  - HORMONE LEVEL ABNORMAL [None]
  - MIGRAINE [None]
  - NIGHT SWEATS [None]
  - ALOPECIA [None]
  - MOOD SWINGS [None]
  - HOT FLUSH [None]
  - DRUG INEFFECTIVE [None]
  - VOMITING [None]
  - NAUSEA [None]
